FAERS Safety Report 8158820-6 (Version None)
Quarter: 2012Q1

REPORT INFORMATION
  Report Type: 
  Country: None (occurrence: None)
  Receive Date: 20120223
  Receipt Date: 20120217
  Transmission Date: 20120608
  Serious: Yes (Death)
  Sender: FDA-Public Use
  Company Number: JP-ASTELLAS-2012JP001419

PATIENT
  Age: 36 Year
  Sex: Female

DRUGS (5)
  1. AMBENONIUM [Concomitant]
     Route: 065
  2. PROGRAF [Suspect]
     Indication: MYASTHENIA GRAVIS
     Route: 065
  3. PREDNISOLONE [Concomitant]
     Dosage: 10 MG, UNKNOWN/D
     Route: 065
  4. PREDNISOLONE [Concomitant]
     Dosage: 20 MG, UNKNOWN/D
     Route: 065
  5. STEROID [Concomitant]
     Route: 061

REACTIONS (1)
  - PNEUMONIA [None]
